FAERS Safety Report 9308062 (Version 1)
Quarter: 2013Q2

REPORT INFORMATION
  Report Type: Spontaneous
  Country: GB (occurrence: GB)
  Receive Date: 20130524
  Receipt Date: 20130524
  Transmission Date: 20140414
  Serious: Yes (Hospitalization)
  Sender: FDA-Public Use
  Company Number: GB-ASTRAZENECA-2013SE34453

PATIENT
  Age: 68 Year
  Sex: Male

DRUGS (2)
  1. TICAGRELOR [Suspect]
     Route: 048
     Dates: start: 20130426
  2. ASPIRIN [Concomitant]

REACTIONS (1)
  - Platelet count decreased [Recovered/Resolved]
